FAERS Safety Report 12739871 (Version 1)
Quarter: 2016Q3

REPORT INFORMATION
  Report Type: Spontaneous
  Country: US (occurrence: US)
  Receive Date: 20160913
  Receipt Date: 20160913
  Transmission Date: 20161109
  Serious: Yes (Life-Threatening, Hospitalization)
  Sender: FDA-Public Use
  Company Number: US-OTSUKA-02100-USA-02-0003

PATIENT
  Age: 89 Year
  Sex: Female

DRUGS (1)
  1. PLETAL [Suspect]
     Active Substance: CILOSTAZOL
     Indication: PRODUCT USED FOR UNKNOWN INDICATION
     Dosage: 100 MG, BID
     Route: 048
     Dates: start: 20010806, end: 20010812

REACTIONS (4)
  - Cardiac failure congestive [Recovered/Resolved]
  - Cholecystitis [Unknown]
  - Acute kidney injury [Recovered/Resolved]
  - Renal tubular necrosis [Recovered/Resolved]

NARRATIVE: CASE EVENT DATE: 20010812
